FAERS Safety Report 7642360-4 (Version None)
Quarter: 2011Q3

REPORT INFORMATION
  Report Type: 
  Country: None (occurrence: None)
  Receive Date: 20110728
  Receipt Date: 20110720
  Transmission Date: 20111222
  Serious: Yes (Hospitalization)
  Sender: FDA-Public Use
  Company Number: ES-B.I. PHARMACEUTICALS,INC./RIDGEFIELD-2011-ES-00172ES

PATIENT
  Age: 81 Year
  Sex: Female

DRUGS (1)
  1. PRADAXA [Suspect]
     Indication: HIP SURGERY
     Dosage: 220 MG
     Route: 048
     Dates: start: 20110225, end: 20110228

REACTIONS (2)
  - DRUG PRESCRIBING ERROR [None]
  - UPPER GASTROINTESTINAL HAEMORRHAGE [None]
